FAERS Safety Report 7022455-9 (Version None)
Quarter: 2010Q3

REPORT INFORMATION
  Report Type: 
  Country: None (occurrence: None)
  Receive Date: 20100930
  Receipt Date: 20100920
  Transmission Date: 20110219
  Serious: Yes (Other)
  Sender: FDA-Public Use
  Company Number: US-BAXTER-2010BH023992

PATIENT
  Age: 53 Year
  Sex: Male

DRUGS (2)
  1. FEIBA [Suspect]
     Indication: ACQUIRED HAEMOPHILIA
     Route: 065
  2. FEIBA [Suspect]
     Indication: FACTOR VIII DEFICIENCY
     Route: 065

REACTIONS (5)
  - DIALYSIS [None]
  - HAEMORRHAGE [None]
  - RENAL FAILURE [None]
  - SEPSIS [None]
  - THROMBOSIS IN DEVICE [None]
